FAERS Safety Report 9638311 (Version 2)
Quarter: 2013Q4

REPORT INFORMATION
  Report Type: Spontaneous
  Country: US (occurrence: US)
  Receive Date: 20131022
  Receipt Date: 20131022
  Transmission Date: 20140711
  Serious: No
  Sender: FDA-Public Use
  Company Number: US-TEVA-405104USA

PATIENT
  Age: 31 Year
  Sex: Female

DRUGS (2)
  1. PARAGARD 380A [Suspect]
     Indication: CONTRACEPTION
     Route: 015
     Dates: start: 20130401, end: 20130512
  2. SEROQUEL XR [Concomitant]

REACTIONS (8)
  - Device expulsion [Recovered/Resolved]
  - Menorrhagia [Recovering/Resolving]
  - Pelvic pain [Unknown]
  - Vaginal odour [Unknown]
  - Pyrexia [Unknown]
  - Chills [Unknown]
  - Dizziness [Unknown]
  - Uterine spasm [Unknown]
